FAERS Safety Report 8773143 (Version 1)
Quarter: 2012Q4

REPORT INFORMATION
  Report Type: 
  Country: US (occurrence: US)
  Receive Date: 20120907
  Receipt Date: 20120907
  Transmission Date: 20130627
  Serious: Yes (Other)
  Sender: FDA-Public Use
  Company Number: US-ROCHE-1109694

PATIENT
  Age: 68 Year
  Sex: Male
  Weight: 102.15 kg

DRUGS (21)
  1. ERIVEDGE [Suspect]
     Indication: BASAL CELL CARCINOMA
     Route: 048
     Dates: start: 20120510
  2. ASPIRIN [Concomitant]
     Indication: CEREBROVASCULAR ACCIDENT PROPHYLAXIS
     Route: 048
     Dates: start: 20111102
  3. DAPTOMYCIN [Concomitant]
     Indication: URINARY TRACT INFECTION
     Route: 042
     Dates: start: 20111102
  4. FLOMAX [Concomitant]
     Route: 048
     Dates: start: 20111102
  5. LASIX [Concomitant]
     Indication: SWELLING
     Route: 048
     Dates: start: 20111102
  6. LOSARTAN [Concomitant]
     Indication: BLOOD PRESSURE
     Route: 048
  7. MOBIC [Concomitant]
     Indication: OSTEOARTHRITIS
     Route: 065
  8. MULTIVITAMIN [Concomitant]
     Route: 065
  9. PLAVIX [Concomitant]
     Indication: PROPHYLAXIS
     Route: 065
  10. POTASSIUM CHLORIDE [Concomitant]
     Indication: SWELLING
     Route: 065
  11. PRAVASTATIN [Concomitant]
     Indication: BLOOD CHOLESTEROL
     Route: 065
  12. PRILOSEC [Concomitant]
     Indication: DYSPEPSIA
     Route: 065
  13. SAW PALMETTO [Concomitant]
     Indication: DYSURIA
     Route: 065
  14. SKELAXIN [Concomitant]
     Indication: MUSCLE SPASMS
     Route: 065
  15. B COMPLEX [Concomitant]
     Route: 065
  16. TOPROL XL [Concomitant]
     Indication: BLOOD PRESSURE
     Route: 065
  17. VIAGRA [Concomitant]
     Route: 065
  18. VITAMIN A [Concomitant]
     Route: 065
  19. VITAMIN C [Concomitant]
     Route: 065
  20. VITAMIN D2 [Concomitant]
     Route: 065
  21. XANAX [Concomitant]
     Route: 065

REACTIONS (6)
  - Muscle spasms [Recovering/Resolving]
  - Abdominal distension [Recovering/Resolving]
  - Fatigue [Unknown]
  - Muscle spasms [Unknown]
  - Ageusia [Recovering/Resolving]
  - Dyspnoea [Recovering/Resolving]
